FAERS Safety Report 23030969 (Version 2)
Quarter: 2023Q4

REPORT INFORMATION
  Report Type: Spontaneous
  Country: CN (occurrence: CN)
  Receive Date: 20231005
  Receipt Date: 20231016
  Transmission Date: 20240110
  Serious: Yes (Other)
  Sender: FDA-Public Use
  Company Number: CN-SANOFI-01780356

PATIENT
  Age: 68 Year
  Sex: Female

DRUGS (1)
  1. PRALUENT [Suspect]
     Active Substance: ALIROCUMAB
     Indication: Lipids increased
     Dosage: UNK
     Dates: end: 202309

REACTIONS (5)
  - Lipids decreased [Unknown]
  - Cerebral ischaemia [Unknown]
  - Dizziness [Unknown]
  - Headache [Unknown]
  - Vascular pain [Unknown]

NARRATIVE: CASE EVENT DATE: 20230901
